FAERS Safety Report 8993213 (Version 2)
Quarter: 2013Q1

REPORT INFORMATION
  Report Type: Spontaneous
  Country: US (occurrence: US)
  Receive Date: 20130102
  Receipt Date: 20130117
  Transmission Date: 20140127
  Serious: Yes (Other)
  Sender: FDA-Public Use
  Company Number: US-ROCHE-1176203

PATIENT
  Age: 44 Year
  Sex: Male

DRUGS (11)
  1. GANCICLOVIR [Suspect]
     Indication: HEART TRANSPLANT
     Route: 042
  2. GANCICLOVIR [Suspect]
     Indication: RETINITIS
  3. GANCICLOVIR [Suspect]
     Indication: ANTIVIRAL PROPHYLAXIS
  4. AZATHIOPRINE [Concomitant]
     Route: 065
  5. FOSCARNET [Concomitant]
     Route: 065
  6. THYMOGLOBULIN [Concomitant]
     Route: 065
  7. VALGANCICLOVIR [Concomitant]
     Route: 065
  8. PREDNISONE [Concomitant]
     Route: 065
  9. TACROLIMUS [Concomitant]
     Route: 065
  10. MYCOPHENOLATE MOFETIL [Concomitant]
     Route: 065
  11. LEFLUNOMIDE [Concomitant]
     Route: 065

REACTIONS (1)
  - Drug resistance [Unknown]
